FAERS Safety Report 11351219 (Version 2)
Quarter: 2015Q3

REPORT INFORMATION
  Report Type: Spontaneous
  Country: US (occurrence: US)
  Receive Date: 20150807
  Receipt Date: 20150812
  Transmission Date: 20151125
  Serious: No
  Sender: FDA-Public Use
  Company Number: US-PFIZER INC-2015263324

PATIENT
  Age: 66 Year
  Sex: Female
  Weight: 49.89 kg

DRUGS (3)
  1. VICODIN [Concomitant]
     Active Substance: ACETAMINOPHEN\HYDROCODONE BITARTRATE
     Dosage: HYDROCODONE BITARTRATE 5MG, PARACETAMOL500 MG
     Dates: start: 2005
  2. ACETAMINOPHEN. [Concomitant]
     Active Substance: ACETAMINOPHEN
     Dosage: UNK 4X/DAY
     Route: 048
     Dates: start: 2005
  3. CELEBREX [Suspect]
     Active Substance: CELECOXIB
     Indication: BONE PAIN
     Dosage: 200 MG, UNK
     Dates: start: 200510, end: 200511

REACTIONS (4)
  - Pain in extremity [Not Recovered/Not Resolved]
  - Malaise [Recovered/Resolved]
  - Osteoporosis [Unknown]
  - Condition aggravated [Not Recovered/Not Resolved]

NARRATIVE: CASE EVENT DATE: 2015
